FAERS Safety Report 23015046 (Version 1)
Quarter: 2023Q4

REPORT INFORMATION
  Report Type: Spontaneous
  Country: None (occurrence: US)
  Receive Date: 20231002
  Receipt Date: 20231002
  Transmission Date: 20240110
  Serious: No
  Sender: FDA-Public Use
  Company Number: US-Ascent Pharmaceuticals, Inc.-2146493

PATIENT
  Age: 59 Year
  Sex: Female
  Weight: 44.091 kg

DRUGS (1)
  1. HYDROMORPHONE HYDROCHLORIDE [Suspect]
     Active Substance: HYDROMORPHONE HYDROCHLORIDE
     Indication: Spinal cord injury
     Route: 048
     Dates: start: 20230727, end: 202308

REACTIONS (3)
  - Insomnia [Recovered/Resolved]
  - Therapeutic product effect incomplete [Unknown]
  - Product substitution issue [Unknown]

NARRATIVE: CASE EVENT DATE: 20230727
